FAERS Safety Report 17687773 (Version 1)
Quarter: 2020Q2

REPORT INFORMATION
  Report Type: Spontaneous
  Country: US (occurrence: US)
  Receive Date: 20200417
  Receipt Date: 20200417
  Transmission Date: 20200714
  Serious: No
  Sender: FDA-Public Use
  Company Number: None

PATIENT
  Age: 66 Year
  Sex: Male
  Weight: 88 kg

DRUGS (1)
  1. APIXABAN (APIXABAN 5MG TAB) [Suspect]
     Active Substance: APIXABAN
     Dates: start: 20170404

REACTIONS (2)
  - Gastric haemorrhage [None]
  - Anastomotic ulcer haemorrhage [None]

NARRATIVE: CASE EVENT DATE: 20190530
